FAERS Safety Report 6969489-8 (Version None)
Quarter: 2010Q3

REPORT INFORMATION
  Report Type: 
  Country: None (occurrence: None)
  Receive Date: 20100902
  Receipt Date: 20100817
  Transmission Date: 20110219
  Serious: Yes (Hospitalization)
  Sender: FDA-Public Use
  Company Number: ACO_01856_2010

PATIENT
  Sex: Male
  Weight: 70.3075 kg

DRUGS (5)
  1. AMPYRA [Suspect]
     Indication: GAIT DISTURBANCE
     Dosage: (10 MG BID ORAL)
     Route: 048
     Dates: start: 20100623, end: 20100806
  2. DOXAZOSIN MESYLATE [Concomitant]
  3. BACLOFEN [Concomitant]
  4. IBUPROFEN [Concomitant]
  5. REBIF [Concomitant]

REACTIONS (5)
  - BLOOD DISORDER [None]
  - CYSTITIS [None]
  - DRUG INEFFECTIVE [None]
  - PALPITATIONS [None]
  - SLEEP DISORDER [None]
